FAERS Safety Report 7068422-0 (Version None)
Quarter: 2010Q4

REPORT INFORMATION
  Report Type: 
  Country: None (occurrence: None)
  Receive Date: 20101028
  Receipt Date: 20101022
  Transmission Date: 20110411
  Serious: Yes (Hospitalization)
  Sender: FDA-Public Use
  Company Number: B0680801A

PATIENT
  Sex: Male

DRUGS (6)
  1. AVANDAMET [Suspect]
     Indication: TYPE 2 DIABETES MELLITUS
     Route: 048
     Dates: end: 20100619
  2. BIPRETERAX [Concomitant]
     Route: 065
     Dates: end: 20100619
  3. FLECAINIDE ACETATE [Concomitant]
     Route: 065
  4. KARDEGIC [Concomitant]
     Route: 048
  5. PREVISCAN [Concomitant]
     Route: 065
  6. HYPERIUM [Concomitant]
     Route: 065

REACTIONS (11)
  - ARRHYTHMIA SUPRAVENTRICULAR [None]
  - ASTHENIA [None]
  - DECREASED APPETITE [None]
  - DIARRHOEA [None]
  - HYPERKALAEMIA [None]
  - HYPERLACTACIDAEMIA [None]
  - HYPOXIA [None]
  - LACTIC ACIDOSIS [None]
  - METABOLIC ACIDOSIS [None]
  - OXYGEN SATURATION DECREASED [None]
  - RENAL FAILURE ACUTE [None]
